FAERS Safety Report 18758524 (Version 2)
Quarter: 2021Q1

REPORT INFORMATION
  Report Type: Spontaneous
  Country: AR (occurrence: AR)
  Receive Date: 20210120
  Receipt Date: 20210126
  Transmission Date: 20210419
  Serious: Yes (Other)
  Sender: FDA-Public Use
  Company Number: AR-AMGEN-ARGSP2021008296

PATIENT
  Age: 64 Year
  Sex: Female

DRUGS (2)
  1. ENBREL [Suspect]
     Active Substance: ETANERCEPT
     Indication: RHEUMATOID ARTHRITIS
     Dosage: 50 MG, WEEKLY
     Route: 065
     Dates: start: 20101127
  2. ENBREL [Suspect]
     Active Substance: ETANERCEPT
     Dosage: UNK, (EVERY TWO WEEKS)
     Route: 065
     Dates: end: 20201103

REACTIONS (9)
  - Joint dislocation [Not Recovered/Not Resolved]
  - Drug ineffective [Not Recovered/Not Resolved]
  - Infection [Not Recovered/Not Resolved]
  - Wrist fracture [Not Recovered/Not Resolved]
  - Tendon injury [Not Recovered/Not Resolved]
  - Intentional product misuse [Not Recovered/Not Resolved]
  - Diabetes mellitus [Not Recovered/Not Resolved]
  - Patella fracture [Not Recovered/Not Resolved]
  - Cerebrovascular accident [Not Recovered/Not Resolved]
